FAERS Safety Report 6505519-5 (Version None)
Quarter: 2009Q4

REPORT INFORMATION
  Report Type: 
  Country: None (occurrence: None)
  Receive Date: 20091218
  Receipt Date: 20091117
  Transmission Date: 20100525
  Serious: No
  Sender: FDA-Public Use
  Company Number: US-BAYER-200939903NA

PATIENT
  Age: 40 Year
  Sex: Female
  Weight: 56 kg

DRUGS (2)
  1. MIRENA [Suspect]
     Indication: CONTRACEPTION
     Dosage: CONTINUOUS
     Route: 015
     Dates: start: 20090820
  2. UNKNOWN DRUG [Concomitant]
     Indication: VAGINAL HAEMORRHAGE
     Dates: start: 20090901, end: 20090901

REACTIONS (4)
  - GENITAL DISCHARGE [None]
  - HUNGER [None]
  - VAGINAL HAEMORRHAGE [None]
  - WEIGHT INCREASED [None]
